FAERS Safety Report 10282413 (Version 1)
Quarter: 2014Q3

REPORT INFORMATION
  Report Type: Report from Study
  Country: BR (occurrence: BR)
  Receive Date: 20140707
  Receipt Date: 20140707
  Transmission Date: 20150326
  Serious: Yes (Other)
  Sender: FDA-Public Use
  Company Number: PHHY2014BR083444

PATIENT
  Age: 37 Year
  Sex: Male
  Weight: 58 kg

DRUGS (5)
  1. CLOPIDOGREL BISULFATE. [Concomitant]
     Active Substance: CLOPIDOGREL BISULFATE
     Indication: ANTIPLATELET THERAPY
     Dosage: UNK UKN, UNK
     Dates: start: 201310
  2. AAS [Concomitant]
     Active Substance: ASPIRIN
     Indication: COAGULOPATHY
     Dosage: UNK UKN, UNK
  3. TEGRETOL [Suspect]
     Active Substance: CARBAMAZEPINE
     Indication: CONVULSION
     Dosage: TWICE DAILY (ONE IN THE MORNING AND ONE AT NIGHT)
     Route: 048
  4. GARDENAL//PHENOBARBITAL [Suspect]
     Active Substance: PHENOBARBITAL
     Indication: CONVULSION
     Dosage: 1.5 DF, UNK
     Route: 048
     Dates: start: 201302
  5. LOSARTAN [Concomitant]
     Active Substance: LOSARTAN
     Indication: BLOOD PRESSURE ABNORMAL
     Dosage: UNK UKN, UNK

REACTIONS (2)
  - Head injury [Recovering/Resolving]
  - Convulsion [Recovering/Resolving]

NARRATIVE: CASE EVENT DATE: 201404
